FAERS Safety Report 7884188-6 (Version None)
Quarter: 2011Q4

REPORT INFORMATION
  Report Type: 
  Country: None (occurrence: None)
  Receive Date: 20111102
  Receipt Date: 20111024
  Transmission Date: 20120403
  Serious: Yes (Hospitalization)
  Sender: FDA-Public Use
  Company Number: RU-GLAXOSMITHKLINE-B0759684A

PATIENT
  Age: 57 Year
  Sex: Male
  Weight: 80 kg

DRUGS (1)
  1. AVODART [Suspect]
     Indication: PROSTATIC ADENOMA
     Route: 048
     Dates: start: 20090601, end: 20090901

REACTIONS (2)
  - PROSTATOMEGALY [None]
  - DRUG INEFFECTIVE [None]
